FAERS Safety Report 9443833 (Version 1)
Quarter: 2013Q3

REPORT INFORMATION
  Report Type: Spontaneous
  Country: FR (occurrence: FR)
  Receive Date: 20130806
  Receipt Date: 20130806
  Transmission Date: 20140515
  Serious: Yes (Hospitalization)
  Sender: FDA-Public Use
  Company Number: FR-ROCHE-1258076

PATIENT
  Age: 72 Year
  Sex: Female

DRUGS (3)
  1. VALIUM [Suspect]
     Indication: TOXICITY TO VARIOUS AGENTS
     Route: 048
     Dates: start: 20130413, end: 20130413
  2. CODOLIPRANE [Suspect]
     Indication: TOXICITY TO VARIOUS AGENTS
     Route: 048
     Dates: start: 20130413, end: 20130413
  3. FLUIMICIL [Concomitant]

REACTIONS (1)
  - Toxicity to various agents [Recovered/Resolved]
